FAERS Safety Report 9675887 (Version 2)
Quarter: 2014Q2

REPORT INFORMATION
  Report Type: Spontaneous
  Country: CH (occurrence: CH)
  Receive Date: 20131107
  Receipt Date: 20140521
  Transmission Date: 20141212
  Serious: Yes (Other)
  Sender: FDA-Public Use
  Company Number: CH-GLAXOSMITHKLINE-B0940122A

PATIENT
  Age: 30 Year
  Sex: Female

DRUGS (4)
  1. SERETIDE [Suspect]
     Indication: BRONCHOPULMONARY ASPERGILLOSIS
     Dosage: 1PUFF TWICE PER DAY
     Route: 055
  2. EFEXOR [Suspect]
     Indication: GENERALISED ANXIETY DISORDER
     Dosage: 225MG PER DAY
     Route: 065
     Dates: start: 20130612
  3. TEMESTA [Suspect]
     Indication: PRODUCT USED FOR UNKNOWN INDICATION
     Dosage: .5MG TWICE PER DAY
     Route: 065
     Dates: start: 201310, end: 20140107
  4. HOPS + VALERIAN ROOT [Concomitant]
     Dosage: 1UNIT PER DAY
     Dates: start: 201310

REACTIONS (2)
  - Exposure during pregnancy [Unknown]
  - Live birth [Unknown]
